FAERS Safety Report 5262533-8 (Version None)
Quarter: 2007Q1

REPORT INFORMATION
  Report Type: 
  Country: None (occurrence: None)
  Receive Date: 20070312
  Receipt Date: 20070308
  Transmission Date: 20070707
  Serious: Yes (Death)
  Sender: FDA-Public Use
  Company Number: US-BRISTOL-MYERS SQUIBB COMPANY-13707401

PATIENT
  Age: 70 Year
  Sex: Male
  Weight: 127 kg

DRUGS (4)
  1. PRAVACHOL [Suspect]
  2. PLAVIX [Suspect]
  3. INSULIN [Concomitant]
  4. TICLID [Concomitant]

REACTIONS (1)
  - MYOCARDIAL INFARCTION [None]
